FAERS Safety Report 15122680 (Version 1)
Quarter: 2018Q3

REPORT INFORMATION
  Report Type: Spontaneous
  Country: DE (occurrence: DE)
  Receive Date: 20180709
  Receipt Date: 20180709
  Transmission Date: 20181010
  Serious: Yes (Hospitalization, Disabling)
  Sender: FDA-Public Use
  Company Number: DE-GALDERMA-DE18019597

PATIENT
  Age: 84 Year
  Sex: Male

DRUGS (2)
  1. ORAYCEA [Suspect]
     Active Substance: DOXYCYCLINE
     Indication: OCULAR ROSACEA
     Dosage: 40 MG MILLGRAM(S)/DAY
     Route: 048
  2. SOOLANTRA [Suspect]
     Active Substance: IVERMECTIN
     Indication: OCULAR ROSACEA
     Dosage: DAILY DOSE: 2 DF DOSAGE FORM/DAY
     Route: 061

REACTIONS (6)
  - Blindness unilateral [Not Recovered/Not Resolved]
  - Product administered at inappropriate site [Recovered/Resolved]
  - Inappropriate schedule of drug administration [Recovered/Resolved]
  - Corneal lesion [Not Recovered/Not Resolved]
  - Product use in unapproved indication [Recovered/Resolved]
  - Overdose [Recovered/Resolved]

NARRATIVE: CASE EVENT DATE: 20160207
